FAERS Safety Report 10475844 (Version 1)
Quarter: 2014Q3

REPORT INFORMATION
  Report Type: Spontaneous
  Country: US (occurrence: US)
  Receive Date: 20140925
  Receipt Date: 20140925
  Transmission Date: 20150326
  Serious: No
  Sender: FDA-Public Use
  Company Number: US-GLAXOSMITHKLINE-A1086934A

PATIENT
  Age: 54 Year
  Sex: Female
  Weight: 106.8 kg

DRUGS (10)
  1. MEKINIST [Suspect]
     Active Substance: TRAMETINIB DIMETHYL SULFOXIDE
     Indication: NEUROENDOCRINE CARCINOMA
     Dosage: 2MG PER DAY
     Route: 048
     Dates: start: 201401
  2. ALLERTEC [Concomitant]
     Route: 065
  3. ZOLPIDEM [Concomitant]
     Active Substance: ZOLPIDEM\ZOLPIDEM TARTRATE
     Route: 065
  4. HYDROCODONE, ACETAMINOPHEN [Concomitant]
     Active Substance: ACETAMINOPHEN\HYDROCODONE BITARTRATE
     Route: 065
  5. SIMVASTATIN. [Concomitant]
     Active Substance: SIMVASTATIN
     Route: 065
  6. IBUPROFEN. [Concomitant]
     Active Substance: IBUPROFEN
     Route: 065
  7. OMEPRAZOLE. [Concomitant]
     Active Substance: OMEPRAZOLE
     Route: 065
  8. FUROSEMIDE. [Concomitant]
     Active Substance: FUROSEMIDE
     Route: 065
  9. KLOR CON [Concomitant]
     Route: 065
  10. ATENOLOL. [Concomitant]
     Active Substance: ATENOLOL
     Route: 065

REACTIONS (11)
  - Dry skin [Unknown]
  - Cough [Unknown]
  - Rash [Unknown]
  - Visual field defect [Unknown]
  - Acne [Unknown]
  - Oral mucosal blistering [Unknown]
  - Dyspnoea [Unknown]
  - Musculoskeletal chest pain [Unknown]
  - Chest X-ray abnormal [Unknown]
  - Pain [Unknown]
  - Photopsia [Unknown]

NARRATIVE: CASE EVENT DATE: 201401
